FAERS Safety Report 11550656 (Version 1)
Quarter: 2015Q3

REPORT INFORMATION
  Report Type: Spontaneous
  Country: US (occurrence: US)
  Receive Date: 20150903
  Receipt Date: 20150903
  Transmission Date: 20151125
  Serious: No
  Sender: FDA-Public Use
  Company Number: US-ELI_LILLY_AND_COMPANY-US201211003330

PATIENT
  Age: 59 Year
  Sex: Male

DRUGS (1)
  1. HUMALOG [Suspect]
     Active Substance: INSULIN LISPRO
     Indication: TYPE 1 DIABETES MELLITUS
     Dosage: UNK UNK, PRN
     Route: 058
     Dates: start: 199108

REACTIONS (6)
  - Fatigue [Unknown]
  - Micturition disorder [Unknown]
  - Blood glucose increased [Unknown]
  - Malaise [Unknown]
  - Drug ineffective [Unknown]
  - Thirst [Unknown]

NARRATIVE: CASE EVENT DATE: 20121109
